FAERS Safety Report 5126295-7 (Version None)
Quarter: 2006Q3

REPORT INFORMATION
  Report Type: 
  Country: None (occurrence: None)
  Receive Date: 20060825
  Receipt Date: 20050818
  Transmission Date: 20061208
  Serious: Yes (Hospitalization)
  Sender: FDA-Public Use
  Company Number: 05P-163-0308527-00

PATIENT
  Age: 55 Year
  Sex: Female

DRUGS (3)
  1. SYNTHROID [Suspect]
     Indication: THYROID DISORDER
     Dosage: SEE IMAGE
     Route: 048
     Dates: start: 19840101, end: 19900101
  2. SYNTHROID [Suspect]
     Indication: THYROID DISORDER
     Dosage: SEE IMAGE
     Route: 048
     Dates: start: 19900101
  3. METOPROLOL SUCCINATE [Concomitant]

REACTIONS (1)
  - ARRHYTHMIA [None]
